FAERS Safety Report 7753886-7 (Version None)
Quarter: 2011Q3

REPORT INFORMATION
  Report Type: 
  Country: None (occurrence: None)
  Receive Date: 20110913
  Receipt Date: 20110830
  Transmission Date: 20111222
  Serious: Yes (Hospitalization, Other)
  Sender: FDA-Public Use
  Company Number: 2011MA012734

PATIENT
  Age: 88 Year
  Sex: Female

DRUGS (6)
  1. METOPROLOL TARTRATE [Concomitant]
  2. HYDRALAZINE HCL [Concomitant]
  3. CLONIDINE HCL [Suspect]
     Indication: HYPERTENSION
     Dosage: 0.3 MG; QW; TDER
     Route: 062
  4. DILTIAZEM [Concomitant]
  5. CHLORTHALIDONE [Concomitant]
  6. LISINOPRIL [Concomitant]

REACTIONS (10)
  - FATIGUE [None]
  - BLOOD PRESSURE SYSTOLIC INCREASED [None]
  - HEART RATE DECREASED [None]
  - CEREBRAL ATROPHY [None]
  - CONDITION AGGRAVATED [None]
  - NODAL RHYTHM [None]
  - PRESYNCOPE [None]
  - HAEMOGLOBIN DECREASED [None]
  - CONDUCTION DISORDER [None]
  - DRUG LEVEL INCREASED [None]
